FAERS Safety Report 10882397 (Version 1)
Quarter: 2015Q1

REPORT INFORMATION
  Report Type: Spontaneous
  Country: US (occurrence: None)
  Receive Date: 20150226
  Receipt Date: 20150226
  Transmission Date: 20150721
  Serious: Yes (Hospitalization)
  Sender: FDA-Public Use
  Company Number: INS201502-000055

PATIENT
  Sex: Male
  Weight: 99.79 kg

DRUGS (7)
  1. CYMBALTA [Concomitant]
     Active Substance: DULOXETINE HYDROCHLORIDE
  2. SUBSYS [Suspect]
     Active Substance: FENTANYL
     Indication: NEURALGIA
  3. NOVOLOG (INSULIN ASPART, RECOMBINANT) [Concomitant]
  4. NEXIUM [Concomitant]
     Active Substance: ESOMEPRAZOLE MAGNESIUM
  5. XARELTO [Concomitant]
     Active Substance: RIVAROXABAN
  6. BENICAR (OLMESARTAN) [Concomitant]
  7. LEVEMIR [Concomitant]
     Active Substance: INSULIN DETEMIR

REACTIONS (4)
  - Foot operation [None]
  - Product packaging quantity issue [None]
  - Off label use [None]
  - Product quality issue [None]
